FAERS Safety Report 9309505 (Version 1)
Quarter: 2013Q2

REPORT INFORMATION
  Report Type: Spontaneous
  Country: US (occurrence: US)
  Receive Date: 20130525
  Receipt Date: 20130525
  Transmission Date: 20140414
  Serious: No
  Sender: FDA-Public Use
  Company Number: US-BRISTOL-MYERS SQUIBB COMPANY-18726653

PATIENT
  Age: 58 Year
  Sex: Male

DRUGS (13)
  1. BYDUREON [Suspect]
     Indication: TYPE 2 DIABETES MELLITUS
     Dosage: 10 MCG
     Route: 058
     Dates: start: 20130314
  2. BYETTA [Concomitant]
     Indication: TYPE 2 DIABETES MELLITUS
     Dosage: 10UG BID
     Route: 058
  3. NOVOLOG [Concomitant]
     Indication: TYPE 2 DIABETES MELLITUS
     Route: 058
  4. LANTUS [Concomitant]
     Indication: TYPE 2 DIABETES MELLITUS
  5. CRESTOR [Concomitant]
     Route: 048
  6. METFORMIN HCL [Concomitant]
     Indication: TYPE 2 DIABETES MELLITUS
     Route: 048
  7. IBUPROFEN [Concomitant]
  8. DIOVAN [Concomitant]
  9. METOPROLOL [Concomitant]
     Route: 048
  10. DIGOXIN [Concomitant]
     Route: 048
  11. ASPIRIN [Concomitant]
     Route: 048
  12. VITAMINS [Concomitant]
     Route: 048
  13. COENZYME-Q10 [Concomitant]
     Route: 048

REACTIONS (3)
  - Injection site haemorrhage [Recovered/Resolved]
  - Underdose [Recovered/Resolved]
  - Injection site pain [Recovered/Resolved]
